FAERS Safety Report 23623059 (Version 1)
Quarter: 2024Q1

REPORT INFORMATION
  Report Type: Report from Study
  Country: US (occurrence: US)
  Receive Date: 20240312
  Receipt Date: 20240312
  Transmission Date: 20240409
  Serious: Yes (Hospitalization)
  Sender: FDA-Public Use
  Company Number: US-MYLANLABS-2024M1022559

PATIENT
  Age: 69 Year
  Sex: Male

DRUGS (1)
  1. CLOZAPINE [Suspect]
     Active Substance: CLOZAPINE
     Indication: Product used for unknown indication
     Dosage: 225 MILLIGRAM, QD (200MG AT HS AND 25MG IN AM)
     Route: 048

REACTIONS (2)
  - Hospitalisation [Unknown]
  - Circumstance or information capable of leading to medication error [Unknown]

NARRATIVE: CASE EVENT DATE: 20240306
